FAERS Safety Report 4308726-5 (Version None)
Quarter: 2004Q1

REPORT INFORMATION
  Report Type: 
  Country: None (occurrence: None)
  Receive Date: 20040227
  Receipt Date: 20040216
  Transmission Date: 20041129
  Serious: Yes (Death)
  Sender: FDA-Public Use
  Company Number: USA-2003-0012090

PATIENT
  Age: 51 Year
  Sex: Male

DRUGS (4)
  1. MORPHINE SULFATE [Suspect]
  2. OXYCODONE HCL [Suspect]
  3. CODEINE (CODEINE) [Suspect]
  4. PROMETHAZINE [Suspect]

REACTIONS (4)
  - DRUG TOXICITY [None]
  - MULTIPLE DRUG OVERDOSE [None]
  - VICTIM OF HOMICIDE [None]
  - VOMITING [None]
